FAERS Safety Report 11737006 (Version 1)
Quarter: 2015Q4

REPORT INFORMATION
  Report Type: Spontaneous
  Country: US (occurrence: None)
  Receive Date: 20151112
  Receipt Date: 20151112
  Transmission Date: 20160304
  Serious: No
  Sender: FDA-Public Use
  Company Number: None

PATIENT
  Age: 34 Year
  Sex: Female
  Weight: 47.63 kg

DRUGS (5)
  1. TRINESSA BIRTH CONTROL [Concomitant]
  2. ECHINACEA [Concomitant]
     Active Substance: ECHINACEA, UNSPECIFIED
  3. WOMEN^S MULTIVITAMIN [Concomitant]
  4. PERMETHRIN 5% PERRIGO [Suspect]
     Active Substance: PERMETHRIN
     Indication: ACARODERMATITIS
     Route: 061
     Dates: start: 20151108, end: 20151108
  5. DAILY PROBIOTIC [Concomitant]

REACTIONS (7)
  - Drug administered at inappropriate site [None]
  - Accidental exposure to product [None]
  - Vaginal discharge [None]
  - Application site induration [None]
  - Vulvovaginal swelling [None]
  - Purulence [None]
  - Rash pruritic [None]

NARRATIVE: CASE EVENT DATE: 20151108
